FAERS Safety Report 8429082-7 (Version None)
Quarter: 2012Q2

REPORT INFORMATION
  Report Type: 
  Country: None (occurrence: None)
  Receive Date: 20120612
  Receipt Date: 20120605
  Transmission Date: 20120825
  Serious: Yes (Hospitalization)
  Sender: FDA-Public Use
  Company Number: CA-SANOFI-AVENTIS-2012SA015022

PATIENT
  Sex: Male

DRUGS (4)
  1. LANTUS [Suspect]
     Route: 065
  2. AZITHROMYCIN [Concomitant]
     Indication: LOWER RESPIRATORY TRACT INFECTION BACTERIAL
     Route: 048
     Dates: start: 20111201
  3. LANTUS [Suspect]
     Route: 065
  4. ALL OTHER THERAPEUTIC PRODUCTS [Concomitant]
     Indication: LOWER RESPIRATORY TRACT INFECTION BACTERIAL
     Route: 048
     Dates: start: 20111201

REACTIONS (3)
  - CHRONIC OBSTRUCTIVE PULMONARY DISEASE [None]
  - DIZZINESS [None]
  - DYSPNOEA [None]
